FAERS Safety Report 6370911-9 (Version None)
Quarter: 2009Q3

REPORT INFORMATION
  Report Type: 
  Country: None (occurrence: None)
  Receive Date: 20090923
  Receipt Date: 20070613
  Transmission Date: 20100115
  Serious: Yes (Other)
  Sender: FDA-Public Use
  Company Number: US-ASTRAZENECA-2006UW22563

PATIENT
  Sex: Female
  Weight: 101.2 kg

DRUGS (77)
  1. SEROQUEL [Suspect]
     Route: 048
     Dates: start: 20000713
  2. SEROQUEL [Suspect]
     Route: 048
     Dates: end: 20040101
  3. SEROQUEL [Suspect]
     Dosage: 200 MG AT MORNING, 400 MG AT NIGHT
     Route: 048
     Dates: start: 20001019, end: 20041130
  4. SEROQUEL [Suspect]
     Dosage: 25 MG DISPENSED
     Route: 048
     Dates: start: 20050319
  5. SEROQUEL [Suspect]
     Dosage: 25 MG EVERY MORNING, 75 MG AT BEDTIME
     Route: 048
     Dates: start: 20070328
  6. ABILIFY [Concomitant]
  7. HALDOL [Concomitant]
  8. ZYPREXA [Concomitant]
  9. NEURONTIN [Concomitant]
  10. NEURONTIN [Concomitant]
  11. RISPERDAL [Concomitant]
     Route: 048
  12. REGLAN [Concomitant]
  13. REGLAN [Concomitant]
  14. KLONOPIN [Concomitant]
     Route: 048
  15. SYNTHROID [Concomitant]
     Dosage: 0.075-0.15 MG, DAILY
  16. CELEBREX [Concomitant]
  17. ASPIRIN [Concomitant]
     Dosage: 81 MG, 350 MG DAILY, 800 MG DAILY
  18. GLUCOPHAGE [Concomitant]
  19. GLUCOPHAGE [Concomitant]
     Dosage: 750 MG AT MORNING, 250 MG AT NIGHT
  20. LOPRESSOR [Concomitant]
     Dosage: 8-100 MG
     Route: 048
  21. VICODIN [Concomitant]
     Indication: HEADACHE
     Dosage: FOUR TIMES A DAY
  22. COZAAR [Concomitant]
     Route: 048
  23. GLUCOVANCE [Concomitant]
     Dosage: 5 MG/ 500 MG DAILY
     Route: 048
  24. PREMARIN [Concomitant]
     Route: 048
  25. PHENERGAN [Concomitant]
     Indication: NAUSEA
     Route: 054
  26. PHENERGAN [Concomitant]
     Indication: VOMITING
     Route: 054
  27. LEVAQUIN [Concomitant]
  28. TOPROL-XL [Concomitant]
     Dosage: 25-50 MG, EVERYDAY
  29. PROTONIX [Concomitant]
  30. BACTRIM [Concomitant]
     Dosage: TWICE A DAY
  31. AMBIEN [Concomitant]
     Route: 048
  32. NPH INSULIN [Concomitant]
     Dosage: 22 U IN MORNING, 14 U AT NIGHT
  33. ACEON [Concomitant]
  34. ESIDRIX [Concomitant]
  35. PLENDIL [Concomitant]
  36. GLYNASE [Concomitant]
     Dosage: 3-5 MG
  37. IMODIUM [Concomitant]
     Route: 048
  38. VICOPROFEN [Concomitant]
  39. ATIVAN [Concomitant]
     Indication: AGITATION
     Dosage: 1-2 MG, EVERY 4 HOURS
     Route: 048
  40. ATIVAN [Concomitant]
     Indication: SLEEP DISORDER
     Dosage: 1-2 MG, EVERY 4 HOURS
     Route: 048
  41. MECLIZINE [Concomitant]
  42. ZALEPLON [Concomitant]
  43. DARVOCET [Concomitant]
     Route: 048
  44. MYLANTA [Concomitant]
     Indication: DYSPEPSIA
     Route: 048
  45. COLACE [Concomitant]
  46. LOVENOX [Concomitant]
  47. MILK OF MAGNESIA TAB [Concomitant]
     Indication: CONSTIPATION
     Route: 048
  48. LOMOTIL [Concomitant]
  49. FOSAMAX [Concomitant]
  50. LEVBID [Concomitant]
     Route: 048
  51. FLEXERIL [Concomitant]
     Indication: MUSCLE SPASMS
     Route: 048
  52. SOMA [Concomitant]
     Route: 048
  53. ACTOS [Concomitant]
  54. LOXITANE [Concomitant]
  55. K-DUR [Concomitant]
  56. VISTARIL [Concomitant]
  57. COGENTIN [Concomitant]
  58. LAMICTAL [Concomitant]
  59. MIDAZOLAM HYDROCHLORIDE [Concomitant]
     Dosage: STRENGTH: 1MG/ML
  60. GEODON [Concomitant]
     Indication: AGITATION
     Dosage: 10-20 MG EVERY 6 HOURS
     Route: 048
  61. CIPRO [Concomitant]
  62. GATIFLOXACIN [Concomitant]
  63. LEXAPRO [Concomitant]
  64. IBUPROFEN [Concomitant]
     Dosage: 200-600 MG
  65. DIFLUCAN [Concomitant]
     Route: 048
  66. NABUMETONE [Concomitant]
     Dosage: 500-750 MG
  67. PENICILLIN VK [Concomitant]
  68. LAMISIL [Concomitant]
  69. ALLEGRA D 24 HOUR [Concomitant]
     Dosage: TWO TIMES A DAY
  70. DEPAKOTE [Concomitant]
  71. WARFARIN SODIUM [Concomitant]
  72. CEPHALEXIN [Concomitant]
  73. BACLOFEN [Concomitant]
     Route: 048
  74. VIOXX [Concomitant]
  75. FLAGYL [Concomitant]
  76. METHYLPHENIDATE HCL [Concomitant]
  77. SODIUM CHLORIDE INJ [Concomitant]

REACTIONS (3)
  - DIABETIC KETOACIDOSIS [None]
  - LIVER FUNCTION TEST ABNORMAL [None]
  - TYPE 2 DIABETES MELLITUS [None]
